FAERS Safety Report 6313801-X (Version None)
Quarter: 2009Q3

REPORT INFORMATION
  Report Type: 
  Country: None (occurrence: None)
  Receive Date: 20090818
  Receipt Date: 20090413
  Transmission Date: 20100115
  Serious: No
  Sender: FDA-Public Use
  Company Number: US-BRISTOL-MYERS SQUIBB COMPANY-14584965

PATIENT
  Sex: Male

DRUGS (2)
  1. REYATAZ [Suspect]
     Indication: HIV INFECTION
     Dosage: 3YRS AGO STARTED WITH 300MG;ONE YR AGO DOSE INCREASED TO 400MG;LATER STOPPED.
  2. RITONAVIR [Suspect]
     Indication: HIV INFECTION
     Dosage: STARTED 3 YRS AGO.

REACTIONS (1)
  - NEPHROLITHIASIS [None]
